FAERS Safety Report 6232653-X (Version None)
Quarter: 2009Q2

REPORT INFORMATION
  Report Type: 
  Country: None (occurrence: None)
  Receive Date: 20090617
  Receipt Date: 20090604
  Transmission Date: 20091009
  Serious: Yes (Hospitalization)
  Sender: FDA-Public Use
  Company Number: JP-PFIZER INC-2009226367

PATIENT
  Age: 60 Year

DRUGS (2)
  1. AMLODIPINE [Suspect]
     Dosage: UNK
     Route: 048
  2. TELMISARTAN [Suspect]

REACTIONS (3)
  - OVERDOSE [None]
  - RENAL FAILURE ACUTE [None]
  - SHOCK [None]
